FAERS Safety Report 7401697-4 (Version None)
Quarter: 2011Q1

REPORT INFORMATION
  Report Type: 
  Country: None (occurrence: None)
  Receive Date: 20110329
  Receipt Date: 20110321
  Transmission Date: 20110831
  Serious: Yes (Other)
  Sender: FDA-Public Use
  Company Number: 2011-0489

PATIENT

DRUGS (1)
  1. SOMATULINE AUTOGEL (LANREOTIDE AUTOGEL) (LANREOTIDE) (LANREOTIDE ACETA [Suspect]
     Indication: ACROMEGALY
     Dosage: SUBCUTANEOUS
     Route: 058

REACTIONS (1)
  - HAEMANGIOMA OF LIVER [None]
